FAERS Safety Report 6453818-8 (Version None)
Quarter: 2009Q4

REPORT INFORMATION
  Report Type: 
  Country: None (occurrence: None)
  Receive Date: 20091123
  Receipt Date: 20091123
  Transmission Date: 20100525
  Serious: No
  Sender: FDA-Public Use
  Company Number: None

PATIENT
  Age: 11 Year
  Sex: Male
  Weight: 54.4316 kg

DRUGS (1)
  1. BAYER ONE A DAY TEEN ADVANTAGE BAYER [Suspect]
     Indication: VITAMIN SUPPLEMENTATION
     Dates: start: 20091103, end: 20091104

REACTIONS (3)
  - NAUSEA [None]
  - PRODUCT COLOUR ISSUE [None]
  - VOMITING [None]
